FAERS Safety Report 17389237 (Version 1)
Quarter: 2020Q1

REPORT INFORMATION
  Report Type: Spontaneous
  Country: CN (occurrence: CN)
  Receive Date: 20200207
  Receipt Date: 20200207
  Transmission Date: 20200409
  Serious: Yes (Death, Other)
  Sender: FDA-Public Use
  Company Number: CN-NOVAST LABORATORIES LTD.-2020NOV000011

PATIENT
  Age: 19 Year
  Sex: Female

DRUGS (1)
  1. METHYLPREDNISOLONE. [Suspect]
     Active Substance: METHYLPREDNISOLONE
     Indication: SYSTEMIC LUPUS ERYTHEMATOSUS
     Dosage: 24 MILLIGRAM, QD
     Route: 065

REACTIONS (6)
  - Haemorrhagic varicella syndrome [Fatal]
  - Thrombocytopenia [Not Recovered/Not Resolved]
  - Disseminated intravascular coagulation [Unknown]
  - Epilepsy [Unknown]
  - Multiple organ dysfunction syndrome [Fatal]
  - Shock [Fatal]
